FAERS Safety Report 5401316-2 (Version None)
Quarter: 2007Q3

REPORT INFORMATION
  Report Type: 
  Country: None (occurrence: None)
  Receive Date: 20070731
  Receipt Date: 20070720
  Transmission Date: 20080115
  Serious: Yes (Hospitalization, Other)
  Sender: FDA-Public Use
  Company Number: SE-JNJFOC-20070702309

PATIENT
  Sex: Female

DRUGS (3)
  1. REMINYL [Suspect]
  2. REMINYL [Suspect]
  3. REMINYL [Suspect]
     Indication: DEMENTIA

REACTIONS (4)
  - DEEP VEIN THROMBOSIS [None]
  - NAUSEA [None]
  - PULMONARY EMBOLISM [None]
  - TRANSIENT ISCHAEMIC ATTACK [None]
